FAERS Safety Report 5597218-1 (Version None)
Quarter: 2008Q1

REPORT INFORMATION
  Report Type: 
  Country: None (occurrence: None)
  Receive Date: 20080121
  Receipt Date: 20080108
  Transmission Date: 20080703
  Serious: Yes (Hospitalization)
  Sender: FDA-Public Use
  Company Number: PHHY2008MX00526

PATIENT
  Age: 69 Year
  Sex: Male

DRUGS (1)
  1. ZELMAC [Suspect]
     Indication: IRRITABLE BOWEL SYNDROME
     Dosage: 2 TABLETS ,6 MG PER DAY
     Route: 048
     Dates: start: 20071201, end: 20071201

REACTIONS (1)
  - PROSTATECTOMY [None]
